FAERS Safety Report 13255797 (Version 1)
Quarter: 2017Q1

REPORT INFORMATION
  Report Type: Report from Study
  Country: NL (occurrence: NL)
  Receive Date: 20170221
  Receipt Date: 20170221
  Transmission Date: 20170428
  Serious: Yes (Hospitalization, Other)
  Sender: FDA-Public Use
  Company Number: NL-AMGEN-NLDSL2017025201

PATIENT
  Age: 70 Year
  Sex: Female

DRUGS (39)
  1. PANTOPRAZOL PENSA [Concomitant]
     Active Substance: PANTOPRAZOLE SODIUM
     Dosage: 40 MG, QD
     Route: 048
     Dates: start: 20170208
  2. PARACETAMOL [Concomitant]
     Active Substance: ACETAMINOPHEN
     Dosage: 500 MG, QD
     Route: 048
     Dates: start: 20170105
  3. MEBEVERINE [Concomitant]
     Active Substance: MEBEVERINE
     Dosage: 200 MG, QD
     Route: 048
     Dates: start: 20161230
  4. BREWERS YEAST [Concomitant]
     Active Substance: SACCHAROMYCES CEREVISIAE
     Dosage: 30/10MG/G, QD
     Dates: start: 20170210
  5. OXYCODON [Concomitant]
     Active Substance: OXYCODONE
     Dosage: 10 MG, QD
     Route: 048
     Dates: start: 20150710
  6. BISACODYL. [Concomitant]
     Active Substance: BISACODYL
     Dosage: 5 MG, QD
     Route: 048
     Dates: start: 20170206
  7. CALCIUM/VITAMIN D3 [Concomitant]
     Dosage: 500MG/440IE, QD
     Route: 048
     Dates: start: 20170127
  8. XGEVA [Suspect]
     Active Substance: DENOSUMAB
     Indication: PRODUCT USED FOR UNKNOWN INDICATION
     Dosage: 120 MG, Q4WK
     Route: 058
     Dates: start: 20150511
  9. DALTEPARINE SODIQUE [Concomitant]
     Dosage: (18000 IE=0.72ML), QD
     Dates: start: 20170211
  10. CALCIUM CARBONATE W/COLECALCIFEROL [Concomitant]
     Active Substance: CALCIUM CARBONATE\CHOLECALCIFEROL
     Dosage: 1.25 G/440IE (500 MG CALCIUM), QD
     Dates: start: 20150710
  11. MOVIPREP [Concomitant]
     Active Substance: ASCORBIC ACID\POLYETHYLENE GLYCOL 3350\POTASSIUM CHLORIDE\SODIUM ASCORBATE\SODIUM CHLORIDE\SODIUM SULFATE
     Dosage: UNK
     Route: 048
     Dates: start: 20170206
  12. MAGNESIUM HYDROXIDE. [Concomitant]
     Active Substance: MAGNESIUM HYDROXIDE
     Dosage: 500 MG, QD
     Route: 048
     Dates: start: 20170126
  13. KLYSMA SALINISCH [Concomitant]
     Dosage: UNK UNK, QD
     Dates: start: 20170126
  14. COLEX [Concomitant]
     Dosage: UNK UNK, QD
     Dates: start: 20170126
  15. LETROZOL ACCORD [Concomitant]
     Active Substance: LETROZOLE
     Dosage: 2.5 MG, QD
     Route: 048
     Dates: start: 20170123
  16. SORBITOL. [Concomitant]
     Active Substance: SORBITOL
     Dosage: 1/250 MG/ML, UNK
     Dates: start: 20170117
  17. XGEVA [Suspect]
     Active Substance: DENOSUMAB
     Dosage: UNK
     Route: 058
     Dates: start: 20161215
  18. XGEVA [Suspect]
     Active Substance: DENOSUMAB
     Dosage: UNK
     Route: 058
     Dates: start: 20170208
  19. METFORMIN [Concomitant]
     Active Substance: METFORMIN HYDROCHLORIDE
     Dosage: 500 MG, QD
     Route: 048
     Dates: start: 20170211
  20. COD-LIVER OIL [Concomitant]
     Active Substance: FISH OIL
     Dosage: 30/10MG/G, QD
     Dates: start: 20170210
  21. DULOXETINE. [Concomitant]
     Active Substance: DULOXETINE
     Dosage: 30 MG, QD
     Route: 048
     Dates: start: 20170117
  22. CLEMASTINE [Concomitant]
     Active Substance: CLEMASTINE
     Dosage: 1 MG, QD
     Route: 048
     Dates: start: 20170105
  23. PREGABALINE [Concomitant]
     Active Substance: PREGABALIN
     Dosage: 75 MG, QD
     Route: 048
     Dates: start: 20161230
  24. XGEVA [Suspect]
     Active Substance: DENOSUMAB
     Dosage: UNK
     Route: 058
     Dates: start: 20161122
  25. TOLBUTAMIDE. [Concomitant]
     Active Substance: TOLBUTAMIDE
     Dosage: 500 MG, QD
     Route: 048
     Dates: start: 20170117
  26. NITROFURANTOINE [Concomitant]
     Dosage: 50 MG, QD
     Route: 048
     Dates: start: 20170212, end: 20170216
  27. PREDNISOLON [Concomitant]
     Active Substance: PREDNISOLONE
     Dosage: 5 MG, UNK
     Route: 048
     Dates: start: 20170106
  28. XGEVA [Suspect]
     Active Substance: DENOSUMAB
     Dosage: UNK
     Route: 058
     Dates: start: 20170112
  29. BUDESONIDE W/FORMOTEROL [Concomitant]
     Active Substance: BUDESONIDE\FORMOTEROL
     Dosage: 200/6MUG/DO/120DO, QD
     Dates: start: 20161230
  30. CAD [Concomitant]
     Active Substance: CALCIUM CARBONATE\CHOLECALCIFEROL
     Dosage: 500MG/440IE
     Dates: start: 20170131
  31. FLURAZEPAM HCL [Concomitant]
     Active Substance: FLURAZEPAM HYDROCHLORIDE
     Dosage: 30 MG, QD
     Route: 048
     Dates: start: 20170117
  32. SODIUM LAURYLSULFATE [Concomitant]
     Active Substance: SODIUM LAURYL SULFATE
     Dosage: 5 ML (9/625MG/ML), QD
     Dates: start: 20170113
  33. MICONAZOLE NITRATE. [Concomitant]
     Active Substance: MICONAZOLE NITRATE
     Dosage: 20 MG, QD
     Route: 061
     Dates: start: 20161129, end: 20161228
  34. SOLIFENACINE [Concomitant]
     Dosage: 5 MG, QD
     Route: 048
     Dates: start: 20170208
  35. ZOPICLON [Concomitant]
     Active Substance: ZOPICLONE
     Dosage: 7.5 MG, QD
     Route: 048
     Dates: start: 20161219, end: 20170117
  36. MACROGOL [Concomitant]
     Active Substance: POLYETHYLENE GLYCOLS
     Dosage: UNK UNK, QD
     Route: 048
     Dates: start: 20150710
  37. SENNOSIDE A+B [Concomitant]
     Active Substance: SENNOSIDES A AND B
     Dosage: 2 MG/ML, QD
     Route: 048
     Dates: start: 20170203
  38. AMOXICILLINE [Concomitant]
     Active Substance: AMOXICILLIN
     Dosage: 500 MG, UNK
     Route: 048
     Dates: start: 20161227
  39. HYDROCORTISONE. [Concomitant]
     Active Substance: HYDROCORTISONE
     Dosage: 10 MG, QD
     Route: 061
     Dates: start: 20161129, end: 20161228

REACTIONS (11)
  - Type 2 diabetes mellitus [Unknown]
  - Urinary retention [Unknown]
  - Overgrowth bacterial [Unknown]
  - Pulmonary embolism [Unknown]
  - Fall [Unknown]
  - Hepatic steatosis [Unknown]
  - Flatulence [Unknown]
  - Abdominal pain upper [Unknown]
  - Urinary tract infection [Not Recovered/Not Resolved]
  - Constipation [Unknown]
  - Nephrolithiasis [Unknown]

NARRATIVE: CASE EVENT DATE: 2016
